FAERS Safety Report 6332926-6 (Version None)
Quarter: 2009Q3

REPORT INFORMATION
  Report Type: 
  Country: None (occurrence: None)
  Receive Date: 20090828
  Receipt Date: 20090825
  Transmission Date: 20100115
  Serious: Yes (Hospitalization)
  Sender: FDA-Public Use
  Company Number: US-GILEAD-2009-0021096

PATIENT
  Sex: Female
  Weight: 63.56 kg

DRUGS (9)
  1. LETAIRIS [Suspect]
     Indication: PULMONARY ARTERIAL HYPERTENSION
     Route: 048
     Dates: start: 20090218
  2. LISINOPRIL AND HYDROCHLOROTHIAZIDE [Concomitant]
  3. URSODIOL [Concomitant]
  4. LIPITOR [Concomitant]
  5. MEGESTROL ACETATE [Concomitant]
  6. PROZAC [Concomitant]
  7. ZANTAC [Concomitant]
  8. ACETAMINOPHEN AND HYDROCODONE BITARTRATE [Concomitant]
  9. ASPIRIN [Concomitant]

REACTIONS (1)
  - PNEUMONIA [None]
